FAERS Safety Report 13094062 (Version 1)
Quarter: 2017Q1

REPORT INFORMATION
  Report Type: Spontaneous
  Country: US (occurrence: US)
  Receive Date: 20170106
  Receipt Date: 20170106
  Transmission Date: 20170428
  Serious: No
  Sender: FDA-Public Use
  Company Number: US-PFIZER INC-2017001567

PATIENT
  Age: 52 Year
  Sex: Female

DRUGS (1)
  1. SOMAVERT [Suspect]
     Active Substance: PEGVISOMANT
     Dosage: 30 MG, UNK (9X/WEEK)

REACTIONS (3)
  - Product use issue [Unknown]
  - Drug dose omission [Unknown]
  - Headache [Unknown]
